FAERS Safety Report 21372150 (Version 12)
Quarter: 2023Q2

REPORT INFORMATION
  Report Type: Report from Study
  Country: CN (occurrence: CN)
  Receive Date: 20220923
  Receipt Date: 20230607
  Transmission Date: 20230721
  Serious: Yes (Other)
  Sender: FDA-Public Use
  Company Number: CN-FOSUNKITE-FOSUNKITE-20220176

PATIENT
  Age: 48 Year
  Sex: Female

DRUGS (7)
  1. AXICABTAGENE CILOLEUCEL [Suspect]
     Active Substance: AXICABTAGENE CILOLEUCEL
     Indication: Non-Hodgkin^s lymphoma
     Dosage: 68 ML (1.3*10^8 CELLS (NUMBER OF CAR-T CELLS) (START AND STOP DATE 04-MAY-2022)
     Route: 042
  2. FLUDARABINE [Suspect]
     Active Substance: FLUDARABINE PHOSPHATE
     Indication: Lymphodepletion
     Dosage: 50 MG
     Route: 042
     Dates: start: 20220429, end: 20220501
  3. CYCLOPHOSPHAMIDE [Suspect]
     Active Substance: CYCLOPHOSPHAMIDE
     Indication: Lymphodepletion
     Dosage: 850 MG
     Route: 042
     Dates: start: 20220429, end: 20220501
  4. TISLELIZUMAB [Concomitant]
     Active Substance: TISLELIZUMAB
     Dosage: 400 MG
     Route: 042
     Dates: start: 20220708
  5. ZANUBRUTINIB [Concomitant]
     Active Substance: ZANUBRUTINIB
     Indication: Non-Hodgkin^s lymphoma
     Dosage: 160 MG
     Route: 048
     Dates: start: 20220708
  6. ZANUBRUTINIB [Concomitant]
     Active Substance: ZANUBRUTINIB
     Dosage: UNK, QD
     Route: 048
     Dates: start: 20220329, end: 20220504
  7. ZANUBRUTINIB [Concomitant]
     Active Substance: ZANUBRUTINIB
     Dosage: 160 MG, QD, FOR 1 CYCLE
     Route: 048
     Dates: start: 20220505

REACTIONS (22)
  - Hypokalaemia [Recovered/Resolved]
  - Cytokine release syndrome [Recovered/Resolved]
  - White blood cell count decreased [Recovered/Resolved]
  - Lymphocyte count decreased [Recovered/Resolved]
  - Blood alkaline phosphatase increased [Not Recovered/Not Resolved]
  - Hypophosphataemia [Recovered/Resolved]
  - C-reactive protein increased [Recovered/Resolved]
  - Asthenia [Recovered/Resolved]
  - Cytokine increased [Not Recovered/Not Resolved]
  - Platelet count decreased [Recovered/Resolved]
  - Neutrophil count decreased [Not Recovered/Not Resolved]
  - Anaemia [Not Recovered/Not Resolved]
  - Chest discomfort [Recovered/Resolved]
  - Blood immunoglobulin G decreased [Not Recovered/Not Resolved]
  - Insomnia [Recovered/Resolved]
  - Chest discomfort [Recovered/Resolved]
  - Pyrexia [Recovered/Resolved]
  - Pyrexia [Recovered/Resolved]
  - Hypotension [Recovered/Resolved]
  - Palpitations [Recovered/Resolved]
  - Cough [Recovered/Resolved]
  - Blood immunoglobulin G decreased [Not Recovered/Not Resolved]

NARRATIVE: CASE EVENT DATE: 20220505
